FAERS Safety Report 8952062 (Version 2)
Quarter: 2013Q1

REPORT INFORMATION
  Report Type: Spontaneous
  Country: US (occurrence: US)
  Receive Date: 20121204
  Receipt Date: 20130102
  Transmission Date: 20140127
  Serious: No
  Sender: FDA-Public Use
  Company Number: US-AMGEN-USASP2012070641

PATIENT
  Age: 53 Year
  Sex: Male
  Weight: 92.52 kg

DRUGS (7)
  1. ENBREL [Suspect]
     Indication: RHEUMATOID ARTHRITIS
     Dosage: 50 MG, WEEKLY
     Route: 058
     Dates: start: 20100901
  2. LEFLUNOMIDE [Concomitant]
     Dosage: 20 MG, QD
  3. ASPIRIN [Concomitant]
     Dosage: UNK
  4. MULTIVITAMIN                       /00097801/ [Concomitant]
     Dosage: UNK
  5. DIOVAN [Concomitant]
     Dosage: UNK
  6. LORTAB                             /00607101/ [Concomitant]
     Dosage: 10/500 QID, PRN
  7. MEDROL                             /00049601/ [Concomitant]
     Dosage: UNK

REACTIONS (6)
  - Arthralgia [Not Recovered/Not Resolved]
  - Condition aggravated [Recovering/Resolving]
  - Pain [Unknown]
  - Musculoskeletal stiffness [Recovering/Resolving]
  - Bronchitis [Recovered/Resolved]
  - Pneumonia [Recovered/Resolved]
